FAERS Safety Report 7622398-3 (Version None)
Quarter: 2011Q3

REPORT INFORMATION
  Report Type: 
  Country: None (occurrence: None)
  Receive Date: 20110711
  Receipt Date: 20110624
  Transmission Date: 20111222
  Serious: Yes (Hospitalization)
  Sender: FDA-Public Use
  Company Number: 2011MA008115

PATIENT
  Sex: Male

DRUGS (1)
  1. RAMIPRIL CAPSULE, 10MG (AELLC) (RAMIPRIL) [Suspect]

REACTIONS (1)
  - RENAL FAILURE [None]
